FAERS Safety Report 20926117 (Version 1)
Quarter: 2022Q2

REPORT INFORMATION
  Report Type: Spontaneous
  Country: US (occurrence: US)
  Receive Date: 20220607
  Receipt Date: 20220607
  Transmission Date: 20220721
  Serious: No
  Sender: FDA-Public Use
  Company Number: US-PERRIGO-21US008980

PATIENT
  Age: 28 Year
  Sex: Male
  Weight: 63.492 kg

DRUGS (2)
  1. MINOXIDIL [Suspect]
     Active Substance: MINOXIDIL
     Indication: Alopecia
     Dosage: 1/2 CAPFUL, QD
     Route: 061
     Dates: start: 20210625, end: 20210628
  2. FINASTERIDE [Suspect]
     Active Substance: FINASTERIDE
     Indication: Alopecia
     Dosage: UNKNOWN, UNKNOWN
     Route: 048
     Dates: start: 20210625

REACTIONS (3)
  - Application site pruritus [Recovering/Resolving]
  - Application site pain [Recovered/Resolved]
  - Inappropriate schedule of product administration [Recovered/Resolved]

NARRATIVE: CASE EVENT DATE: 20210625
